FAERS Safety Report 8815657 (Version 1)
Quarter: 2012Q4

REPORT INFORMATION
  Report Type: 
  Country: US (occurrence: US)
  Receive Date: 20120928
  Receipt Date: 20120928
  Transmission Date: 20130627
  Serious: Yes (Death)
  Sender: FDA-Public Use
  Company Number: US-BAXTER-2012BAX018013

PATIENT
  Sex: Male
  Weight: 52.27 kg

DRUGS (1)
  1. GAMMAGARD LIQUID [Suspect]
     Indication: COMMON VARIABLE IMMUNODEFICIENCY
     Route: 042

REACTIONS (4)
  - Adenovirus infection [Fatal]
  - Sinus headache [Unknown]
  - Bone pain [Unknown]
  - Fungal infection [Unknown]
